FAERS Safety Report 8807910 (Version 1)
Quarter: 2012Q4

REPORT INFORMATION
  Report Type: 
  Country: BR (occurrence: BR)
  Receive Date: 20120925
  Receipt Date: 20120925
  Transmission Date: 20130627
  Serious: Yes (Other)
  Sender: FDA-Public Use
  Company Number: PHHY2012BR080537

PATIENT
  Age: 19 Year
  Sex: Male

DRUGS (5)
  1. FORMOTEROL [Suspect]
     Indication: ASTHMA
     Dosage: 24 ug, per day
  2. BUDESONIDE, FORMOTEROL FUMARATE [Suspect]
     Indication: ASTHMA
     Dosage: Budesonide 800 ?g/day and formoterol 24 ?g/day
  3. BUDESONIDE, FORMOTEROL FUMARATE [Suspect]
     Dosage: Budenoside 1200 ug per day
  4. BUDESONIDE, FORMOTEROL FUMARATE [Suspect]
     Dosage: Budenoside 400 ug per day
  5. BUDESONIDE, FORMOTEROL FUMARATE [Suspect]
     Dosage: Budesonide up to 1,600 ?g/day, formoterol 24 ?g/day

REACTIONS (3)
  - Osteoporosis [Recovering/Resolving]
  - Asthma [Recovering/Resolving]
  - Middle insomnia [Recovering/Resolving]
